FAERS Safety Report 4734240-9 (Version None)
Quarter: 2005Q3

REPORT INFORMATION
  Report Type: 
  Country: None (occurrence: None)
  Receive Date: 20050721
  Receipt Date: 20050412
  Transmission Date: 20060218
  Serious: No
  Sender: FDA-Public Use
  Company Number: 2005SP000163

PATIENT
  Age: 76 Year
  Sex: Female
  Weight: 77.1115 kg

DRUGS (1)
  1. LUNESTA [Suspect]
     Indication: INSOMNIA
     Dosage: 2 MG;HS;ORAL
     Route: 048
     Dates: start: 20050407

REACTIONS (7)
  - AMNESIA [None]
  - ASTHENIA [None]
  - DRUG INEFFECTIVE [None]
  - INSOMNIA [None]
  - MOOD ALTERED [None]
  - SOMNOLENCE [None]
  - THINKING ABNORMAL [None]
